FAERS Safety Report 20023727 (Version 1)
Quarter: 2021Q4

REPORT INFORMATION
  Report Type: Report from Study
  Country: US (occurrence: US)
  Receive Date: 20211102
  Receipt Date: 20211102
  Transmission Date: 20220303
  Serious: Yes (Other)
  Sender: FDA-Public Use
  Company Number: US-JAZZ-2021-US-020060

PATIENT
  Sex: Female

DRUGS (25)
  1. XYWAV [Suspect]
     Active Substance: CALCIUM OXYBATE\MAGNESIUM OXYBATE\POTASSIUM OXYBATE\SODIUM OXYBATE
     Indication: Narcolepsy
     Dosage: 4.5 GRAM, BID
     Route: 048
     Dates: start: 202105
  2. MIDODRINE HYDROCHLORIDE [Concomitant]
     Active Substance: MIDODRINE HYDROCHLORIDE
  3. HYDROCHLOROTHIAZIDE [Concomitant]
     Active Substance: HYDROCHLOROTHIAZIDE
  4. PREMARIN [Concomitant]
     Active Substance: ESTROGENS, CONJUGATED
  5. WELLBUTRIN [Concomitant]
     Active Substance: BUPROPION HYDROCHLORIDE
  6. FENTANYL [Concomitant]
     Active Substance: FENTANYL
  7. BENADRYL ALLERGY RELIEF [Concomitant]
  8. LIDODERM [Concomitant]
     Active Substance: LIDOCAINE
  9. ONDANSETRON HCL [Concomitant]
     Active Substance: ONDANSETRON HYDROCHLORIDE
  10. SINGULAIR [Concomitant]
     Active Substance: MONTELUKAST SODIUM
  11. QNASL [Concomitant]
     Active Substance: BECLOMETHASONE DIPROPIONATE
  12. MODAFINIL [Concomitant]
     Active Substance: MODAFINIL
  13. METHYLPHENIDATE [Concomitant]
     Active Substance: METHYLPHENIDATE
  14. FLUTICASONE FUROATE\SALMETEROL XINAFOATE [Concomitant]
     Active Substance: FLUTICASONE FUROATE\SALMETEROL XINAFOATE
  15. ATACAND [Concomitant]
     Active Substance: CANDESARTAN CILEXETIL
  16. BUPROPION [Concomitant]
     Active Substance: BUPROPION
  17. CANDESARTAN CILEXETIL [Concomitant]
     Active Substance: CANDESARTAN CILEXETIL
  18. CARVEDILOL [Concomitant]
     Active Substance: CARVEDILOL
  19. CYCLOBENZAPRINE HYDROCHLORIDE [Concomitant]
     Active Substance: CYCLOBENZAPRINE HYDROCHLORIDE
  20. FEXOFENADINE [Concomitant]
     Active Substance: FEXOFENADINE HYDROCHLORIDE
  21. HYOSCYAMINE [Concomitant]
     Active Substance: HYOSCYAMINE
  22. IPRATROPIUM BROMIDE [Concomitant]
     Active Substance: IPRATROPIUM BROMIDE
  23. MONTELUKAST SODIUM [Concomitant]
     Active Substance: MONTELUKAST SODIUM
  24. OXYCODONE [Concomitant]
     Active Substance: OXYCODONE
  25. PROAIR HFA [Concomitant]
     Active Substance: ALBUTEROL SULFATE

REACTIONS (3)
  - Impaired gastric emptying [Unknown]
  - Crohn^s disease [Unknown]
  - Stress [Unknown]
